FAERS Safety Report 7037067-0 (Version None)
Quarter: 2010Q4

REPORT INFORMATION
  Report Type: 
  Country: None (occurrence: None)
  Receive Date: 20101011
  Receipt Date: 20100927
  Transmission Date: 20110411
  Serious: Yes (Other)
  Sender: FDA-Public Use
  Company Number: PHHY2010US64217

PATIENT
  Age: 81 Year
  Sex: Female

DRUGS (1)
  1. TEKTURNA [Suspect]

REACTIONS (2)
  - EYE HAEMORRHAGE [None]
  - MACULAR DEGENERATION [None]
